FAERS Safety Report 7155112-9 (Version None)
Quarter: 2010Q4

REPORT INFORMATION
  Report Type: 
  Country: None (occurrence: None)
  Receive Date: 20101214
  Receipt Date: 20101025
  Transmission Date: 20110411
  Serious: No
  Sender: FDA-Public Use
  Company Number: US-AMGEN-KDL193720

PATIENT

DRUGS (3)
  1. ENBREL [Suspect]
     Indication: RHEUMATOID ARTHRITIS
     Dosage: 25 MG, 2 TIMES/WK
     Route: 058
     Dates: start: 20041117
  2. ENBREL [Suspect]
     Indication: ANKYLOSING SPONDYLITIS
  3. METHOTREXATE [Concomitant]
     Dosage: 10 MG, QWK
     Dates: start: 20050901

REACTIONS (9)
  - ARTHRALGIA [None]
  - COLD EXPOSURE INJURY [None]
  - GRIP STRENGTH DECREASED [None]
  - HAND DEFORMITY [None]
  - HYPOAESTHESIA [None]
  - INJECTION SITE PAIN [None]
  - MOBILITY DECREASED [None]
  - PHYSICAL DISABILITY [None]
  - VULVOVAGINAL MYCOTIC INFECTION [None]
